FAERS Safety Report 5792643-8 (Version None)
Quarter: 2008Q2

REPORT INFORMATION
  Report Type: 
  Country: None (occurrence: None)
  Receive Date: 20080626
  Receipt Date: 20080614
  Transmission Date: 20081010
  Serious: Yes (Other)
  Sender: FDA-Public Use
  Company Number: US-PFIZER INC-2008052544

PATIENT
  Sex: Female
  Weight: 77.272 kg

DRUGS (4)
  1. CHANTIX [Suspect]
     Indication: SMOKING CESSATION THERAPY
  2. PROZAC [Concomitant]
     Indication: DEPRESSION
  3. LIPITOR [Concomitant]
  4. FOSAMAX [Concomitant]

REACTIONS (1)
  - DEPRESSION [None]
